FAERS Safety Report 10704849 (Version 3)
Quarter: 2015Q1

REPORT INFORMATION
  Report Type: Spontaneous
  Country: US (occurrence: US)
  Receive Date: 20150112
  Receipt Date: 20150218
  Transmission Date: 20150721
  Serious: Yes (Other)
  Sender: FDA-Public Use
  Company Number: US-BAYER-2015-003715

PATIENT
  Sex: Female

DRUGS (1)
  1. BETASERON [Suspect]
     Active Substance: INTERFERON BETA-1B
     Dosage: UNK

REACTIONS (9)
  - Multiple sclerosis relapse [None]
  - Drug ineffective [None]
  - Musculoskeletal disorder [None]
  - Visual impairment [None]
  - Injection site bruising [None]
  - Gait disturbance [None]
  - Feeling abnormal [None]
  - Limb discomfort [None]
  - Agraphia [None]
